FAERS Safety Report 13803029 (Version 2)
Quarter: 2017Q3

REPORT INFORMATION
  Report Type: Spontaneous
  Country: JP (occurrence: JP)
  Receive Date: 20170728
  Receipt Date: 20170801
  Transmission Date: 20171127
  Serious: Yes (Death, Other)
  Sender: FDA-Public Use
  Company Number: JP-ROCHE-1969208

PATIENT
  Age: 117 Day
  Sex: Female

DRUGS (1)
  1. AVASTIN [Suspect]
     Active Substance: BEVACIZUMAB
     Indication: RETINOPATHY OF PREMATURITY
     Dosage: DOSAGE IS UNCERTAIN.
     Route: 031

REACTIONS (6)
  - Off label use [Fatal]
  - Coagulopathy [Fatal]
  - Hepatic failure [Fatal]
  - Intentional product use issue [Fatal]
  - Intestinal perforation [Recovering/Resolving]
  - Renal failure [Fatal]
